FAERS Safety Report 23991029 (Version 1)
Quarter: 2024Q2

REPORT INFORMATION
  Report Type: Report from Study
  Country: US (occurrence: US)
  Receive Date: 20240619
  Receipt Date: 20240619
  Transmission Date: 20240715
  Serious: No
  Sender: FDA-Public Use
  Company Number: US-BIOVITRUM-2024-US-008754

PATIENT
  Age: 4 Year
  Sex: Male

DRUGS (1)
  1. KINERET [Suspect]
     Active Substance: ANAKINRA
     Indication: Still^s disease
     Dosage: DAILY
     Route: 058
     Dates: start: 20240524

REACTIONS (7)
  - Crying [Recovered/Resolved]
  - Injection site bruising [Unknown]
  - Device defective [Unknown]
  - Injection site swelling [Unknown]
  - Inadvertent injection air bubble [Unknown]
  - Injection site pain [Unknown]
  - Intentional product misuse [Not Recovered/Not Resolved]

NARRATIVE: CASE EVENT DATE: 20240524
